FAERS Safety Report 23080840 (Version 11)
Quarter: 2024Q3

REPORT INFORMATION
  Report Type: Report from Study
  Country: US (occurrence: US)
  Receive Date: 20231018
  Receipt Date: 20240828
  Transmission Date: 20241016
  Serious: Yes (Hospitalization, Other)
  Sender: TAKEDA
  Company Number: US-TAKEDA-2023TUS097321

PATIENT
  Age: 67 Year
  Sex: Female

DRUGS (9)
  1. BRIGATINIB [Suspect]
     Active Substance: BRIGATINIB
     Indication: Metastases to lung
     Dosage: 90 MILLIGRAM, QD
     Route: 048
     Dates: start: 20231018
  2. BRIGATINIB [Suspect]
     Active Substance: BRIGATINIB
     Indication: Metastases to central nervous system
     Dosage: 30 MILLIGRAM, QD
     Route: 048
  3. BRIGATINIB [Suspect]
     Active Substance: BRIGATINIB
     Indication: Metastases to the mediastinum
     Dosage: 90 MILLIGRAM, QD
     Route: 048
  4. BRIGATINIB [Suspect]
     Active Substance: BRIGATINIB
     Indication: Lung neoplasm malignant
     Dosage: 30 MILLIGRAM, QD
     Route: 048
  5. BRIGATINIB [Suspect]
     Active Substance: BRIGATINIB
     Dosage: 90 MILLIGRAM
     Route: 048
  6. BRIGATINIB [Suspect]
     Active Substance: BRIGATINIB
     Dosage: 180 MILLIGRAM, QD
     Route: 048
     Dates: start: 20231201, end: 20240301
  7. BRIGATINIB [Suspect]
     Active Substance: BRIGATINIB
     Dosage: 120 MILLIGRAM
     Route: 048
     Dates: start: 2024
  8. BRIGATINIB [Suspect]
     Active Substance: BRIGATINIB
     Dosage: 90 MILLIGRAM
     Route: 048
  9. BRIGATINIB [Suspect]
     Active Substance: BRIGATINIB
     Dosage: 30 MILLIGRAM, TID
     Route: 048

REACTIONS (9)
  - Deep vein thrombosis [Unknown]
  - Carcinoembryonic antigen increased [Unknown]
  - Drug intolerance [Unknown]
  - Headache [Recovered/Resolved]
  - Dizziness [Unknown]
  - Illness [Unknown]
  - Infection [Unknown]
  - Product use issue [Unknown]
  - Off label use [Unknown]

NARRATIVE: CASE EVENT DATE: 20231001
